FAERS Safety Report 4972103-4 (Version None)
Quarter: 2006Q2

REPORT INFORMATION
  Report Type: 
  Country: None (occurrence: None)
  Receive Date: 20060412
  Receipt Date: 20060412
  Transmission Date: 20061013
  Serious: Yes (Death)
  Sender: FDA-Public Use
  Company Number: None

PATIENT
  Sex: Male
  Weight: 74.5 kg

DRUGS (3)
  1. FLUOROURACIL [Suspect]
     Indication: COLON CANCER
     Dosage: 4775 MG
     Dates: start: 20060315, end: 20060315
  2. LEUCOVORIN CALCIUM [Suspect]
     Dosage: 675 MG
     Dates: start: 20060315, end: 20060315
  3. OXALIPLATIN [Suspect]
     Dosage: 145 MG
     Dates: start: 20060315, end: 20060315

REACTIONS (5)
  - CARDIO-RESPIRATORY ARREST [None]
  - FALL [None]
  - INTUBATION COMPLICATION [None]
  - LOSS OF CONSCIOUSNESS [None]
  - VOMITING [None]
